FAERS Safety Report 5550350-0 (Version None)
Quarter: 2007Q4

REPORT INFORMATION
  Report Type: 
  Country: None (occurrence: None)
  Receive Date: 20071210
  Receipt Date: 20071129
  Transmission Date: 20080405
  Serious: Yes (Hospitalization)
  Sender: FDA-Public Use
  Company Number: 056-21880-07120002

PATIENT
  Age: 59 Year
  Sex: Male

DRUGS (5)
  1. REVLIMID [Suspect]
     Indication: MULTIPLE MYELOMA
     Dosage: ORAL, 15 MG, DAILY, ORAL
     Route: 048
     Dates: start: 20070901
  2. REVLIMID [Suspect]
     Indication: MULTIPLE MYELOMA
     Dosage: ORAL, 15 MG, DAILY, ORAL
     Route: 048
     Dates: start: 20071001
  3. REVLIMID [Suspect]
     Indication: MULTIPLE MYELOMA
     Dosage: ORAL, 15 MG, DAILY, ORAL
     Route: 048
     Dates: start: 20071203
  4. DEXAMETHASONE TAB [Concomitant]
  5. ASPIRIN [Concomitant]

REACTIONS (2)
  - ENCEPHALOPATHY [None]
  - PERIPHERAL ISCHAEMIA [None]
